FAERS Safety Report 9181141 (Version 2)
Quarter: 2013Q1

REPORT INFORMATION
  Report Type: Spontaneous
  Country: US (occurrence: US)
  Receive Date: 20130322
  Receipt Date: 20130322
  Transmission Date: 20140127
  Serious: No
  Sender: FDA-Public Use
  Company Number: US-MYLANLABS-2012S1008578

PATIENT
  Age: 63 Year
  Sex: Female
  Weight: 97.52 kg

DRUGS (1)
  1. EMSAM [Suspect]
     Indication: MAJOR DEPRESSION
     Route: 062
     Dates: start: 20110901

REACTIONS (2)
  - Muscle spasms [Recovered/Resolved]
  - Urinary tract infection [Recovered/Resolved]
